FAERS Safety Report 10483502 (Version 1)
Quarter: 2014Q3

REPORT INFORMATION
  Report Type: Spontaneous
  Country: GB (occurrence: None)
  Receive Date: 20140926
  Receipt Date: 20140926
  Transmission Date: 20150326
  Serious: Yes (Other)
  Sender: FDA-Public Use
  Company Number: GB-H14001-14-00700

PATIENT
  Age: 35 Year
  Sex: Female

DRUGS (2)
  1. CO-AMOXICLAV [Suspect]
     Active Substance: AMOXICILLIN\CLAVULANIC ACID
     Indication: EAR INFECTION
     Dosage: (250/125), ORAL
     Route: 048
  2. AMOXICILLIN. [Concomitant]
     Active Substance: AMOXICILLIN

REACTIONS (7)
  - Pruritus generalised [None]
  - Muscular weakness [None]
  - Paraesthesia [None]
  - Restlessness [None]
  - Skin irritation [None]
  - Pain of skin [None]
  - Rash generalised [None]

NARRATIVE: CASE EVENT DATE: 20140904
